FAERS Safety Report 19972685 (Version 2)
Quarter: 2021Q4

REPORT INFORMATION
  Report Type: Spontaneous
  Country: LT (occurrence: LT)
  Receive Date: 20211020
  Receipt Date: 20211103
  Transmission Date: 20220303
  Serious: Yes (Other)
  Sender: FDA-Public Use
  Company Number: LT-ABBVIE-21K-234-4125787-00

PATIENT
  Age: 59 Year
  Sex: Female
  Weight: 67 kg

DRUGS (3)
  1. VENETOCLAX [Suspect]
     Active Substance: VENETOCLAX
     Indication: Chronic lymphocytic leukaemia
     Route: 048
     Dates: start: 20210519, end: 20211006
  2. RITUXIMAB [Concomitant]
     Active Substance: RITUXIMAB
     Indication: Chronic lymphocytic leukaemia
     Dosage: 900 MG EVERY 28 DAYS
     Route: 042
     Dates: start: 20210714, end: 20211008
  3. SULFAMETHOXAZOLE AND TRIMETHOPRIM [Concomitant]
     Active Substance: SULFAMETHOXAZOLE\TRIMETHOPRIM
     Indication: Antifungal prophylaxis
     Dosage: 960 2 TIMES A DAY EVERY MONDAY AND FRIDAY
     Route: 048
     Dates: start: 202105

REACTIONS (1)
  - Haemolysis [Not Recovered/Not Resolved]

NARRATIVE: CASE EVENT DATE: 20211010
